FAERS Safety Report 5423064-5 (Version None)
Quarter: 2007Q3

REPORT INFORMATION
  Report Type: 
  Country: None (occurrence: None)
  Receive Date: 20070821
  Receipt Date: 20070808
  Transmission Date: 20080115
  Serious: Yes (Hospitalization, Other)
  Sender: FDA-Public Use
  Company Number: MEDI-0005753

PATIENT
  Age: 70 Year
  Sex: Female
  Weight: 89.2 kg

DRUGS (9)
  1. ETHYOL [Suspect]
     Dosage: 500 MG, DAY OF RADIATION THERAPY SUBCUTANEOUS
     Route: 058
     Dates: start: 20060306, end: 20060323
  2. RADIATION THEAPY [Concomitant]
  3. UNKNOWN CHEMOTHERAPY [Concomitant]
  4. VERAPAMIL [Concomitant]
  5. ATIVAN [Concomitant]
  6. ACETAMINOPHEN [Concomitant]
  7. AMIODARONE HCL [Concomitant]
  8. XOPENEX [Concomitant]
  9. PROTONIX            (PANTROPRAZOLE) [Concomitant]

REACTIONS (25)
  - ABDOMINAL DISTENSION [None]
  - ABDOMINAL PAIN [None]
  - ASTHENIA [None]
  - ATRIAL FIBRILLATION [None]
  - BODY TEMPERATURE INCREASED [None]
  - DIARRHOEA [None]
  - DUODENAL ULCER [None]
  - ESCHERICHIA INFECTION [None]
  - GASTROINTESTINAL ISCHAEMIA [None]
  - GASTROINTESTINAL NECROSIS [None]
  - GASTROINTESTINAL SOUNDS ABNORMAL [None]
  - HYPERSENSITIVITY [None]
  - HYPERTENSION [None]
  - ILEUS [None]
  - IMMUNOSUPPRESSION [None]
  - JEJUNAL ULCER [None]
  - MALNUTRITION [None]
  - PERITONITIS BACTERIAL [None]
  - PNEUMATOSIS [None]
  - RASH MACULAR [None]
  - RASH PAPULAR [None]
  - SMALL INTESTINAL OBSTRUCTION [None]
  - SYNCOPE [None]
  - TACHYCARDIA [None]
  - VOMITING [None]
